FAERS Safety Report 11762714 (Version 1)
Quarter: 2015Q4

REPORT INFORMATION
  Report Type: Spontaneous
  Country: US (occurrence: US)
  Receive Date: 20151120
  Receipt Date: 20151120
  Transmission Date: 20160304
  Serious: No
  Sender: FDA-Public Use
  Company Number: CHPA2015US013869

PATIENT
  Age: 77 Year
  Sex: Female

DRUGS (2)
  1. VOLTAREN [Suspect]
     Active Substance: DICLOFENAC SODIUM
     Indication: PAIN IN EXTREMITY
     Dosage: JUST A DAB, QD
     Route: 061
     Dates: start: 201508, end: 201510
  2. ANTIHYPERTENSIVE DRUGS [Concomitant]
     Active Substance: UNSPECIFIED INGREDIENT
     Indication: HYPERTENSION
     Dosage: UNK UNK, BID

REACTIONS (6)
  - Drug administered at inappropriate site [Unknown]
  - Therapeutic response unexpected [Unknown]
  - Wrong technique in product usage process [Unknown]
  - Pain [Unknown]
  - Product use issue [Unknown]
  - Inappropriate schedule of drug administration [Unknown]

NARRATIVE: CASE EVENT DATE: 201508
